FAERS Safety Report 20645403 (Version 3)
Quarter: 2022Q2

REPORT INFORMATION
  Report Type: Spontaneous
  Country: TR (occurrence: TR)
  Receive Date: 20220328
  Receipt Date: 20220411
  Transmission Date: 20220721
  Serious: Yes (Other)
  Sender: FDA-Public Use
  Company Number: TR-NOVARTISPH-NVSC2022TR069106

PATIENT
  Age: 58 Year
  Sex: Female

DRUGS (9)
  1. METHOTREXATE [Interacting]
     Active Substance: METHOTREXATE
     Indication: Arthralgia
     Dosage: 5 TABLETS ONCE A WEEK (STARTED BEGINNING OF COVID-19 PANDEMIC)
     Route: 065
  2. METHOTREXATE [Interacting]
     Active Substance: METHOTREXATE
     Indication: Pain
  3. METHOTREXATE [Interacting]
     Active Substance: METHOTREXATE
     Indication: Joint swelling
  4. METHOTREXATE [Interacting]
     Active Substance: METHOTREXATE
     Indication: Arthralgia
  5. HYDROCHLOROTHIAZIDE\VALSARTAN [Interacting]
     Active Substance: HYDROCHLOROTHIAZIDE\VALSARTAN
     Indication: Product used for unknown indication
     Dosage: STARTED 2 MONTHS AGO
     Route: 065
  6. AZITHROMYCIN DIHYDRATE [Concomitant]
     Active Substance: AZITHROMYCIN DIHYDRATE
     Indication: Product used for unknown indication
     Route: 065
  7. AMLODIPINE BESYLATE [Concomitant]
     Active Substance: AMLODIPINE BESYLATE
     Indication: Product used for unknown indication
     Route: 065
  8. METOPROLOL SUCCINATE [Concomitant]
     Active Substance: METOPROLOL SUCCINATE
     Indication: Product used for unknown indication
     Route: 065
  9. LEVOTHYROXINE SODIUM [Concomitant]
     Active Substance: LEVOTHYROXINE SODIUM
     Indication: Thyroid disorder
     Route: 065

REACTIONS (6)
  - Hypertension [Not Recovered/Not Resolved]
  - Burning sensation [Unknown]
  - Tachycardia [Unknown]
  - Erythema [Unknown]
  - Drug interaction [Unknown]
  - Hypersensitivity [Unknown]
